FAERS Safety Report 7353778-1 (Version None)
Quarter: 2011Q1

REPORT INFORMATION
  Report Type: 
  Country: None (occurrence: None)
  Receive Date: 20110304
  Receipt Date: 20110217
  Transmission Date: 20110831
  Serious: Yes (Disabling, Other)
  Sender: FDA-Public Use
  Company Number: 20110148

PATIENT
  Age: 71 Year
  Sex: Male

DRUGS (7)
  1. EPINEPHRINE [Suspect]
     Indication: SPINAL ANAESTHESIA
     Dosage: EPIDURAL
     Route: 008
  2. LIDOCAINE HCL [Suspect]
     Indication: SPINAL ANAESTHESIA
     Dosage: EPIDURAL
     Route: 008
  3. BUPIVACAINE HCL [Suspect]
     Indication: INFUSION
     Dosage: EPIDURAL
     Route: 008
  4. FENTANYL [Suspect]
  5. BUPIVACAINE HCL [Suspect]
     Indication: INFUSION
  6. BUPIVACAINE HCL [Suspect]
     Indication: SPINAL ANAESTHESIA
     Dosage: EPIDURAL
     Route: 008
  7. FENTANYL [Suspect]
     Indication: INFUSION
     Dosage: 7.5 UG/ML EPIDURAL
     Route: 008

REACTIONS (3)
  - NEUROPATHY PERIPHERAL [None]
  - MUSCULAR WEAKNESS [None]
  - COMPARTMENT SYNDROME [None]
